FAERS Safety Report 6634477-8 (Version None)
Quarter: 2010Q1

REPORT INFORMATION
  Report Type: 
  Country: None (occurrence: None)
  Receive Date: 20100315
  Receipt Date: 20100308
  Transmission Date: 20100710
  Serious: Yes (Other)
  Sender: FDA-Public Use
  Company Number: US-JNJCH-2010006142

PATIENT
  Age: 13 Year
  Sex: Male

DRUGS (1)
  1. COOL MINT LISTERINE POCKETMIST [Suspect]
     Indication: ACCIDENTAL EXPOSURE
     Dosage: TEXT:UNKNOWN
     Route: 047

REACTIONS (1)
  - ACCIDENTAL EXPOSURE [None]
